FAERS Safety Report 12531216 (Version 2)
Quarter: 2016Q3

REPORT INFORMATION
  Report Type: Spontaneous
  Country: NL (occurrence: NL)
  Receive Date: 20160706
  Receipt Date: 20160715
  Transmission Date: 20161109
  Serious: Yes (Life-Threatening)
  Sender: FDA-Public Use
  Company Number: NL-PFIZER INC-2016331422

PATIENT
  Age: 49 Year
  Sex: Female
  Weight: 57 kg

DRUGS (2)
  1. CHAMPIX [Suspect]
     Active Substance: VARENICLINE TARTRATE
     Dosage: 1 MG, UNK
     Dates: start: 20160623
  2. CHAMPIX [Suspect]
     Active Substance: VARENICLINE TARTRATE
     Indication: SMOKING CESSATION THERAPY
     Dosage: 0.5 DF, 1X/DAY
     Route: 048
     Dates: start: 20160616, end: 20160623

REACTIONS (7)
  - Depersonalisation/derealisation disorder [Recovering/Resolving]
  - Delusion [Recovering/Resolving]
  - Fear [Recovering/Resolving]
  - Depressed mood [Recovering/Resolving]
  - Hallucination [Recovering/Resolving]
  - Nightmare [Recovering/Resolving]
  - Psychotic disorder [Recovering/Resolving]

NARRATIVE: CASE EVENT DATE: 20160616
